FAERS Safety Report 5591182-7 (Version None)
Quarter: 2008Q1

REPORT INFORMATION
  Report Type: 
  Country: None (occurrence: None)
  Receive Date: 20080115
  Receipt Date: 20080108
  Transmission Date: 20080703
  Serious: Yes (Other)
  Sender: FDA-Public Use
  Company Number: US-JNJFOC-20071200969

PATIENT
  Sex: Male

DRUGS (2)
  1. PROPULSID [Suspect]
     Route: 048
  2. PROPULSID [Suspect]
     Indication: GASTROINTESTINAL DISORDER
     Dosage: PERMANENT STOP
     Route: 048

REACTIONS (1)
  - ELECTROCARDIOGRAM QT PROLONGED [None]
